FAERS Safety Report 24046303 (Version 1)
Quarter: 2024Q3

REPORT INFORMATION
  Report Type: Spontaneous
  Country: CA (occurrence: CA)
  Receive Date: 20240703
  Receipt Date: 20240703
  Transmission Date: 20241017
  Serious: Yes (Hospitalization)
  Sender: PFIZER
  Company Number: CA-PFIZER INC-202400205104

PATIENT
  Age: 34 Year
  Sex: Male
  Weight: 55 kg

DRUGS (12)
  1. FRAGMIN [Suspect]
     Active Substance: DALTEPARIN SODIUM
     Indication: Pulmonary embolism
     Dosage: 10000 IU, 1X/DAY
     Route: 058
  2. WARFARIN SODIUM [Suspect]
     Active Substance: WARFARIN SODIUM
     Indication: Pulmonary embolism
     Dosage: 5 MG, 1X/DAY
     Route: 048
  3. ESCITALOPRAM [Concomitant]
     Active Substance: ESCITALOPRAM OXALATE
  4. HYDROMORPHONE [Concomitant]
     Active Substance: HYDROMORPHONE
  5. METOCLOPRAMIDE [Concomitant]
     Active Substance: METOCLOPRAMIDE
  6. NOVORAPID [Concomitant]
     Active Substance: INSULIN ASPART
  7. PANTOPRAZOLE [Concomitant]
     Active Substance: PANTOPRAZOLE
  8. PREGABALIN [Concomitant]
     Active Substance: PREGABALIN
  9. SILDENAFIL [Concomitant]
     Active Substance: SILDENAFIL
  10. TRESIBA [Concomitant]
     Active Substance: INSULIN DEGLUDEC
  11. URSODIOL [Concomitant]
     Active Substance: URSODIOL
  12. ZOPICLONE [Concomitant]
     Active Substance: ZOPICLONE

REACTIONS (2)
  - Anastomotic ulcer [Recovered/Resolved]
  - Lower gastrointestinal haemorrhage [Recovered/Resolved]
